FAERS Safety Report 9549000 (Version 2)
Quarter: 2013Q3

REPORT INFORMATION
  Report Type: Report from Study
  Country: US (occurrence: US)
  Receive Date: 20130924
  Receipt Date: 20130924
  Transmission Date: 20140515
  Serious: Yes (Other)
  Sender: FDA-Public Use
  Company Number: US-ROCHE-1276280

PATIENT
  Sex: Male

DRUGS (6)
  1. RITUXAN [Suspect]
     Indication: SYSTEMIC LUPUS ERYTHEMATOSUS
     Dosage: ON DAY 0 AND DAY 14 EVERY 6 MONTHS?LAST INFUSIONS WERE 21/AUG/2013
     Route: 042
  2. RITUXAN [Suspect]
     Indication: RHEUMATOID ARTHRITIS
  3. ZOFRAN [Concomitant]
     Indication: NAUSEA
  4. TYLENOL [Concomitant]
     Route: 048
  5. BENADRYL (UNITED STATES) [Concomitant]
     Route: 048
  6. SOLU-MEDROL [Concomitant]
     Route: 042

REACTIONS (9)
  - Hallucination [Not Recovered/Not Resolved]
  - Back pain [Unknown]
  - Nausea [Not Recovered/Not Resolved]
  - Pain [Unknown]
  - Cough [Unknown]
  - Throat irritation [Unknown]
  - Pruritus [Unknown]
  - Chills [Unknown]
  - Vomiting [Unknown]
